FAERS Safety Report 23991499 (Version 2)
Quarter: 2024Q3

REPORT INFORMATION
  Report Type: Spontaneous
  Country: US (occurrence: US)
  Receive Date: 20240619
  Receipt Date: 20240726
  Transmission Date: 20241017
  Serious: Yes (Other)
  Sender: CSL BEHRING
  Company Number: US-BEH-2024173751

PATIENT
  Sex: Female

DRUGS (2)
  1. HIZENTRA [Suspect]
     Active Substance: HUMAN IMMUNOGLOBULIN G
     Indication: Immunodeficiency common variable
     Dosage: 10 G, QW
     Route: 058
     Dates: start: 201907
  2. HIZENTRA [Suspect]
     Active Substance: HUMAN IMMUNOGLOBULIN G
     Dosage: 50 ML
     Route: 058
     Dates: start: 201907

REACTIONS (7)
  - Pneumonia [Recovering/Resolving]
  - Vomiting [Unknown]
  - Weight decreased [Unknown]
  - Injection site swelling [Unknown]
  - Dyspnoea [Unknown]
  - Pruritus [Unknown]
  - Scab [Unknown]
